FAERS Safety Report 4553232-6 (Version None)
Quarter: 2005Q1

REPORT INFORMATION
  Report Type: 
  Country: None (occurrence: None)
  Receive Date: 20050112
  Receipt Date: 20041222
  Transmission Date: 20050727
  Serious: Yes (Other)
  Sender: FDA-Public Use
  Company Number: USA041286852

PATIENT
  Age: 4 Year
  Sex: Male
  Weight: 15 kg

DRUGS (3)
  1. PROZAC [Suspect]
     Indication: ANXIETY
     Dosage: 2.5 MG DAY
     Dates: start: 20041101, end: 20041115
  2. DIPHENHYDRAMINE HYDROCHLORIDE [Concomitant]
  3. AMOXICILLIN [Concomitant]

REACTIONS (1)
  - PLATELET COUNT DECREASED [None]
